FAERS Safety Report 21093043 (Version 1)
Quarter: 2022Q3

REPORT INFORMATION
  Report Type: Other
  Country: GR (occurrence: GR)
  Receive Date: 20220718
  Receipt Date: 20220718
  Transmission Date: 20221027
  Serious: Yes (Other)
  Sender: FDA-Public Use
  Company Number: GR-MYLANLABS-2022M1048774

PATIENT

DRUGS (2)
  1. ATEZOLIZUMAB [Suspect]
     Active Substance: ATEZOLIZUMAB
     Indication: Hepatocellular carcinoma
     Dosage: UNK, 6 MONTHS(1- 21 WEEKS)
     Route: 065
  2. BEVACIZUMAB [Suspect]
     Active Substance: BEVACIZUMAB
     Indication: Hepatocellular carcinoma
     Dosage: UNK, 6 MONTHS(1- 21 WEEKS)
     Route: 065

REACTIONS (11)
  - Pulmonary embolism [Unknown]
  - Haemoperitoneum [Unknown]
  - Autoimmune thyroiditis [Unknown]
  - Abscess [Unknown]
  - Drug intolerance [Unknown]
  - Amylase [Unknown]
  - Fatigue [Unknown]
  - Haematuria [Unknown]
  - Colitis [Unknown]
  - Condition aggravated [Unknown]
  - Proteinuria [Unknown]
